FAERS Safety Report 24773420 (Version 1)
Quarter: 2024Q4

REPORT INFORMATION
  Report Type: Report from Study
  Country: AR (occurrence: AR)
  Receive Date: 20241225
  Receipt Date: 20241225
  Transmission Date: 20250114
  Serious: Yes (Hospitalization)
  Sender: BIOGEN
  Company Number: AR-BIOGEN-2024BI01294711

PATIENT
  Age: 7 Year
  Sex: Female

DRUGS (1)
  1. SPINRAZA [Suspect]
     Active Substance: NUSINERSEN
     Indication: Spinal muscular atrophy
     Dosage: LAST APPLICATION ON 24APR2024 DUE TO DELAYS WITH THE APPLICATION CENTER
     Route: 050
     Dates: start: 20210818

REACTIONS (3)
  - Dyspnoea [Not Recovered/Not Resolved]
  - Bronchial secretion retention [Not Recovered/Not Resolved]
  - Pyrexia [Not Recovered/Not Resolved]

NARRATIVE: CASE EVENT DATE: 20241214
